FAERS Safety Report 20046210 (Version 1)
Quarter: 2021Q4

REPORT INFORMATION
  Report Type: Spontaneous
  Country: US (occurrence: US)
  Receive Date: 20211109
  Receipt Date: 20211109
  Transmission Date: 20220303
  Serious: Yes (Other)
  Sender: FDA-Public Use
  Company Number: US-drreddys-SPO/USA/21/0143464

PATIENT
  Age: 31 Year
  Sex: Female

DRUGS (2)
  1. ZENATANE [Suspect]
     Active Substance: ISOTRETINOIN
     Indication: Product used for unknown indication
     Dosage: RMA ISSUE DATE: 27 MAY 2021 12:00:00 AM, 28 JUNE 2021 12:00:00 AM, 28 JULY 2021 12:00:00 AM AND 02 S
  2. ZENATANE [Suspect]
     Active Substance: ISOTRETINOIN
     Dosage: RMA ISSUE DATE: 01 OCTOBER 2021 12:00:00 AM.

REACTIONS (1)
  - Depression [Unknown]
